FAERS Safety Report 25902590 (Version 1)
Quarter: 2025Q4

REPORT INFORMATION
  Report Type: Spontaneous
  Country: US (occurrence: US)
  Receive Date: 20251009
  Receipt Date: 20251009
  Transmission Date: 20260118
  Serious: No
  Sender: NOVARTIS
  Company Number: US-002147023-NVSC2025US152051

PATIENT
  Sex: Female

DRUGS (1)
  1. MEKINIST [Suspect]
     Active Substance: TRAMETINIB DIMETHYL SULFOXIDE
     Indication: Benign neoplasm
     Dosage: 2 ML, QD, (ORAL SOLN)
     Route: 048
     Dates: start: 202508

REACTIONS (2)
  - Muscle twitching [Unknown]
  - Neoplasm [Unknown]
